FAERS Safety Report 11390815 (Version 1)
Quarter: 2015Q3

REPORT INFORMATION
  Report Type: Spontaneous
  Country: IT (occurrence: None)
  Receive Date: 20150813
  Receipt Date: 20150813
  Transmission Date: 20151125
  Serious: Yes (Other)
  Sender: FDA-Public Use
  Company Number: 2015RR-101596

PATIENT
  Age: 75 Year
  Sex: Male
  Weight: 83 kg

DRUGS (4)
  1. CARBOPLATIN. [Suspect]
     Active Substance: CARBOPLATIN
     Indication: BLADDER TRANSITIONAL CELL CARCINOMA
     Dosage: 240 MG, CYCLICAL, INTRAVENOUS
     Route: 042
     Dates: start: 20150302, end: 20150629
  2. GEMCITABINA (GEMCITABINE) UNKNOWN [Suspect]
     Active Substance: GEMCITABINE\GEMCITABINE HYDROCHLORIDE
     Indication: BLADDER TRANSITIONAL CELL CARCINOMA
     Dosage: 1400 MG, CYCLICAL, INTRAVENOUS
     Dates: start: 20150302, end: 20150629
  3. NORVASC (AMLODIPINE BESYLATE) [Concomitant]
  4. TOTALIP (ATORVASTATIN) [Concomitant]

REACTIONS (1)
  - Thrombocytosis [None]

NARRATIVE: CASE EVENT DATE: 20150507
